FAERS Safety Report 25776267 (Version 1)
Quarter: 2025Q3

REPORT INFORMATION
  Report Type: Spontaneous
  Country: US (occurrence: US)
  Receive Date: 20250909
  Receipt Date: 20250909
  Transmission Date: 20251021
  Serious: No
  Sender: DOMPE FARMACEUTICI
  Company Number: US-FARMAPROD-202502-0502

PATIENT
  Age: 77 Year
  Sex: Female

DRUGS (33)
  1. OXERVATE [Suspect]
     Active Substance: CENEGERMIN-BKBJ
     Indication: Neurotrophic keratopathy
     Route: 047
     Dates: start: 20210121
  2. OXERVATE [Suspect]
     Active Substance: CENEGERMIN-BKBJ
     Route: 047
     Dates: start: 20250108
  3. SULFAMETHOXAZOLE\TRIMETHOPRIM [Concomitant]
     Active Substance: SULFAMETHOXAZOLE\TRIMETHOPRIM
  4. FUROSEMIDE [Concomitant]
     Active Substance: FUROSEMIDE
  5. TYLENOL EXTRA STRENGTH [Concomitant]
     Active Substance: ACETAMINOPHEN
  6. TYLENOL 8HR [Concomitant]
     Active Substance: ACETAMINOPHEN
  7. REFRESH CLASSIC [Concomitant]
     Active Substance: POLYVINYL ALCOHOL\POVIDONE
  8. SINGULAIR [Concomitant]
     Active Substance: MONTELUKAST SODIUM
  9. PROBIOTIC WITH PREBIOTIC [Concomitant]
  10. MAGNESIUM [Concomitant]
     Active Substance: MAGNESIUM
  11. HYDROCHLOROTHIAZIDE\SPIRONOLACTONE [Concomitant]
     Active Substance: HYDROCHLOROTHIAZIDE\SPIRONOLACTONE
  12. SILDENAFIL CITRATE [Concomitant]
     Active Substance: SILDENAFIL CITRATE
  13. SERTRALINE HYDROCHLORIDE [Concomitant]
     Active Substance: SERTRALINE HYDROCHLORIDE
  14. BIOTENE NOS [Concomitant]
     Active Substance: UNSPECIFIED INGREDIENT
  15. ROSUVASTATIN CALCIUM [Concomitant]
     Active Substance: ROSUVASTATIN CALCIUM
  16. XARELTO [Concomitant]
     Active Substance: RIVAROXABAN
  17. POTASSIUM CHLORIDE [Concomitant]
     Active Substance: POTASSIUM CHLORIDE
  18. OMEGA-3 + D [Concomitant]
  19. MULTI-VITAMIN DAILY [Concomitant]
  20. METOPROLOL SUCCINATE [Concomitant]
     Active Substance: METOPROLOL SUCCINATE
  21. LEVOTHYROXINE [Concomitant]
     Active Substance: LEVOTHYROXINE
  22. LEVALBUTEROL CONCENTRATE [Concomitant]
  23. TOUJEO [Concomitant]
     Active Substance: INSULIN GLARGINE
  24. LASIX [Concomitant]
     Active Substance: FUROSEMIDE
  25. FLUTICASONE PROPIONATE\SALMETEROL XINAFOATE [Concomitant]
     Active Substance: FLUTICASONE PROPIONATE\SALMETEROL XINAFOATE
  26. FLUOROURACIL [Concomitant]
     Active Substance: FLUOROURACIL
  27. FERROUS SULFATE [Concomitant]
     Active Substance: FERROUS SULFATE
  28. ESTRADIOL [Concomitant]
     Active Substance: ESTRADIOL
  29. CRANBERRY PLUS VITAMIN C [Concomitant]
  30. LOTRIMIN AF ANTIFUNGAL [Concomitant]
     Active Substance: MICONAZOLE NITRATE
  31. CLONAZEPAM [Concomitant]
     Active Substance: CLONAZEPAM
  32. VITAMIN B12 [Concomitant]
     Active Substance: CYANOCOBALAMIN
  33. TRACLEER [Concomitant]
     Active Substance: BOSENTAN

REACTIONS (1)
  - Hospice care [Not Recovered/Not Resolved]

NARRATIVE: CASE EVENT DATE: 20250213
